FAERS Safety Report 15646392 (Version 1)
Quarter: 2018Q4

REPORT INFORMATION
  Report Type: Other
  Country: US (occurrence: US)
  Receive Date: 20181122
  Receipt Date: 20181122
  Transmission Date: 20190205
  Serious: Yes (Other)
  Sender: FDA-Public Use
  Company Number: US-DENTSPLY-2018SCDP000505

PATIENT
  Age: 73 Year
  Sex: Male

DRUGS (14)
  1. LOPERAMIDE [Concomitant]
     Active Substance: LOPERAMIDE
     Indication: PRODUCT USED FOR UNKNOWN INDICATION
     Dosage: UNK
  2. LIDOCAINE. [Suspect]
     Active Substance: LIDOCAINE
     Indication: LOCAL ANAESTHESIA
     Dosage: 270 ML 1% LIDOCAINE
     Route: 058
  3. FENTANYL. [Concomitant]
     Active Substance: FENTANYL
     Indication: SEDATION
     Dosage: 100 MICROGRAM, UNK
  4. LIDOCAINE. [Suspect]
     Active Substance: LIDOCAINE
     Dosage: 6 ML, (TWELVE ML OF A 1:1 MIXTURE OF 1% LIDOCAINE AND 0.5% BUPIVACAINE, IN THE GROIN)
     Route: 058
  5. ONDANSETRON [Suspect]
     Active Substance: ONDANSETRON
     Indication: PROCEDURAL NAUSEA
     Dosage: UNK
  6. PANTOPRAZOLE [Concomitant]
     Active Substance: PANTOPRAZOLE
     Indication: PRODUCT USED FOR UNKNOWN INDICATION
     Dosage: UNK
  7. TAMSULOSIN [Concomitant]
     Active Substance: TAMSULOSIN
     Indication: PRODUCT USED FOR UNKNOWN INDICATION
     Dosage: UNK
  8. LISINOPRIL. [Concomitant]
     Active Substance: LISINOPRIL
     Indication: PRODUCT USED FOR UNKNOWN INDICATION
     Dosage: UNK
  9. METFORMIN [Concomitant]
     Active Substance: METFORMIN HYDROCHLORIDE
     Indication: PRODUCT USED FOR UNKNOWN INDICATION
     Dosage: UNK
  10. GLIPIZIDE. [Concomitant]
     Active Substance: GLIPIZIDE
     Indication: PRODUCT USED FOR UNKNOWN INDICATION
     Dosage: UNK
  11. PROPOFOL. [Concomitant]
     Active Substance: PROPOFOL
     Indication: SEDATION
     Dosage: 380 MG, UNK
  12. BUPIVACAINE. [Concomitant]
     Active Substance: BUPIVACAINE
     Indication: LOCAL ANAESTHESIA
     Dosage: 6 ML, TWELVE ML OF A 1:1 MIXTURE OF 1% LIDOCAINE AND 0.5% BUPIVACAINE, IN THE GROIN
     Route: 058
  13. METOPROLOL. [Concomitant]
     Active Substance: METOPROLOL
     Indication: PRODUCT USED FOR UNKNOWN INDICATION
     Dosage: UNK
  14. SIMVASTATIN. [Concomitant]
     Active Substance: SIMVASTATIN
     Indication: PRODUCT USED FOR UNKNOWN INDICATION
     Dosage: UNK

REACTIONS (7)
  - Muscle rigidity [Recovered/Resolved]
  - Dystonia [Recovered/Resolved]
  - Dysarthria [Recovered/Resolved]
  - Blood pressure increased [Recovered/Resolved]
  - Hypoacusis [Recovered/Resolved]
  - Sinus tachycardia [Recovered/Resolved]
  - Toxicity to various agents [Recovered/Resolved]
